FAERS Safety Report 5411574-6 (Version None)
Quarter: 2007Q3

REPORT INFORMATION
  Report Type: 
  Country: None (occurrence: None)
  Receive Date: 20070810
  Receipt Date: 20070802
  Transmission Date: 20080115
  Serious: Yes (Other)
  Sender: FDA-Public Use
  Company Number: PFIZER INC-2007064615

PATIENT
  Sex: Male

DRUGS (2)
  1. ESTRACYT [Suspect]
     Route: 048
  2. REBAMIPIDE [Concomitant]

REACTIONS (1)
  - INTERSTITIAL LUNG DISEASE [None]
